FAERS Safety Report 18237452 (Version 2)
Quarter: 2020Q3

REPORT INFORMATION
  Report Type: Spontaneous
  Country: JP (occurrence: JP)
  Receive Date: 20200907
  Receipt Date: 20200928
  Transmission Date: 20201103
  Serious: Yes (Hospitalization)
  Sender: FDA-Public Use
  Company Number: JP-TEVA-2020-JP-1824690

PATIENT
  Age: 57 Year
  Sex: Male
  Weight: 64 kg

DRUGS (5)
  1. OXALIPLATIN. [Suspect]
     Active Substance: OXALIPLATIN
     Indication: RECTAL CANCER METASTATIC
     Dosage: 150 MG/BODY; ADMINISTERED VIA CV PORT PLACED IN THE RIGHT SUB?CLAVIAN VEIN
     Route: 042
  2. LEVOFOLINIC ACID [Suspect]
     Active Substance: LEVOLEUCOVORIN
     Indication: RECTAL CANCER METASTATIC
     Dosage: 360 MG/ BODY; ADMINISTERED VIA CV PORT PLACED IN THE RIGHT SUB?CLAVIAN VEIN
     Route: 042
  3. 5?FLUOROURACIL [Suspect]
     Active Substance: FLUOROURACIL
     Indication: RECTAL CANCER METASTATIC
     Dosage: 700 MG/ BODY RAPID IV ; ADMINISTERED VIA CV PORT PLACED IN THE RIGHT SUB?CLAVIAN VEIN
     Route: 042
  4. PANITUMUMAB [Suspect]
     Active Substance: PANITUMUMAB
     Indication: RECTAL CANCER METASTATIC
     Dosage: 440 MG/BODY; ADMINISTERED VIA CV PORT PLACED IN THE RIGHT SUB?CLAVIAN VEIN
     Route: 042
  5. 5?FLUOROURACIL [Suspect]
     Active Substance: FLUOROURACIL
     Indication: RECTAL CANCER METASTATIC
     Dosage: 4,300 MG/BODY SUSTAINED IV ; ADMINISTERED VIA CV PORT PLACED IN THE RIGHT SUB?CLAVIAN VEIN
     Route: 042

REACTIONS (3)
  - Neck pain [Recovered/Resolved]
  - Thrombosis [Unknown]
  - Phlebitis [Unknown]
